FAERS Safety Report 14587226 (Version 4)
Quarter: 2019Q2

REPORT INFORMATION
  Report Type: Spontaneous
  Country: US (occurrence: US)
  Receive Date: 20180301
  Receipt Date: 20190430
  Transmission Date: 20190711
  Serious: No
  Sender: FDA-Public Use
  Company Number: US-BEH-2018088395

PATIENT
  Age: 50 Year
  Sex: Female
  Weight: 102.1 kg

DRUGS (16)
  1. SODIUM CHLORIDE. [Concomitant]
     Active Substance: SODIUM CHLORIDE
  2. DEPO-MEDROL [Concomitant]
     Active Substance: METHYLPREDNISOLONE ACETATE
  3. HEPARIN [Concomitant]
     Active Substance: HEPARIN SODIUM
  4. FLUTICASONE. [Concomitant]
     Active Substance: FLUTICASONE
  5. SYNTHROID [Concomitant]
     Active Substance: LEVOTHYROXINE SODIUM
  6. PROAIR HFA [Concomitant]
     Active Substance: ALBUTEROL SULFATE
  7. HAEGARDA [Suspect]
     Active Substance: HUMAN C1-ESTERASE INHIBITOR
     Indication: PROPHYLAXIS
     Dosage: UNK
     Route: 058
  8. STERILE WATER [Concomitant]
     Active Substance: WATER
  9. SINGULAIR [Concomitant]
     Active Substance: MONTELUKAST SODIUM
  10. HAEGARDA [Suspect]
     Active Substance: HUMAN C1-ESTERASE INHIBITOR
     Indication: HEREDITARY ANGIOEDEMA WITH C1 ESTERASE INHIBITOR DEFICIENCY
     Dosage: 6000 IU, EVERY 3-4 DAYS
     Route: 058
     Dates: start: 20170911
  11. EPINEPHRINE. [Concomitant]
     Active Substance: EPINEPHRINE
  12. CLARITIN [Concomitant]
     Active Substance: LORATADINE
  13. VITAMIN D                          /00107901/ [Concomitant]
     Active Substance: ERGOCALCIFEROL
  14. FIRAZYR [Concomitant]
     Active Substance: ICATIBANT ACETATE
  15. CEFPROZIL. [Concomitant]
     Active Substance: CEFPROZIL
  16. B COMPLEX                          /00212701/ [Concomitant]
     Active Substance: NIACINAMIDE\PYRIDOXINE\RIBOFLAVIN\THIAMINE

REACTIONS (3)
  - Urticaria [Unknown]
  - Emergency care [Unknown]
  - Injection site urticaria [Unknown]
